FAERS Safety Report 9247538 (Version 1)
Quarter: 2013Q2

REPORT INFORMATION
  Report Type: Spontaneous
  Country: FR (occurrence: FR)
  Receive Date: 20130423
  Receipt Date: 20130423
  Transmission Date: 20140414
  Serious: Yes (Hospitalization)
  Sender: FDA-Public Use
  Company Number: PHHY2013FR038683

PATIENT
  Age: 84 Year
  Sex: Female

DRUGS (2)
  1. MINI-SINTROM [Suspect]
     Indication: ATRIAL FIBRILLATION
     Route: 048
     Dates: end: 20130121
  2. DICLOFENAC [Suspect]
     Dosage: UNK UKN, PRN
     Route: 048
     Dates: end: 20130321

REACTIONS (4)
  - Abdominal pain upper [Recovered/Resolved]
  - Gastrointestinal haemorrhage [Recovered/Resolved]
  - Melaena [Recovered/Resolved]
  - International normalised ratio increased [Recovered/Resolved]
